FAERS Safety Report 7097536-4 (Version None)
Quarter: 2010Q4

REPORT INFORMATION
  Report Type: 
  Country: None (occurrence: None)
  Receive Date: 20101111
  Receipt Date: 20101018
  Transmission Date: 20110411
  Serious: Yes (Death)
  Sender: FDA-Public Use
  Company Number: GB-AMGEN-GBRCT2010000460

PATIENT

DRUGS (10)
  1. ETANERCEPT [Suspect]
     Indication: RHEUMATOID ARTHRITIS
     Dosage: 25 MG, 2 TIMES/WK
     Route: 058
     Dates: start: 20030828
  2. DICLOFENAC SODIUM [Concomitant]
     Dosage: UNKNOWN
  3. DOCUSATE SODIUM [Concomitant]
     Dosage: UNKNOWN
  4. WARFARIN [Concomitant]
     Dosage: UNKNOWN
  5. LACTULOSE [Concomitant]
     Dosage: UNKNOWN
  6. RISEDRONATE SODIUM [Concomitant]
     Dosage: UNKNOWN
  7. LEVOTHYROXINE [Concomitant]
     Dosage: UNKNOWN
  8. TRAMADOL HCL [Concomitant]
     Dosage: UNKNOWN
  9. PREDNISOLONE [Concomitant]
     Dosage: UNKNOWN
  10. FUROSEMIDE [Concomitant]
     Dosage: UNKNOWN

REACTIONS (4)
  - INFARCTION [None]
  - LOBAR PNEUMONIA [None]
  - MULTI-ORGAN FAILURE [None]
  - SEPSIS [None]
